FAERS Safety Report 7231799-7 (Version None)
Quarter: 2011Q1

REPORT INFORMATION
  Report Type: 
  Country: None (occurrence: None)
  Receive Date: 20110118
  Receipt Date: 20110111
  Transmission Date: 20110831
  Serious: No
  Sender: FDA-Public Use
  Company Number: US-US-EMD SERONO, INC.-233554J09USA

PATIENT
  Sex: Female

DRUGS (2)
  1. REBIF [Suspect]
     Indication: MULTIPLE SCLEROSIS
     Route: 058
     Dates: start: 20090828
  2. ADVIL PM [Concomitant]
     Indication: INFLUENZA LIKE ILLNESS
     Dates: start: 20090101

REACTIONS (1)
  - NO ADVERSE EVENT [None]
